FAERS Safety Report 14527907 (Version 3)
Quarter: 2018Q1

REPORT INFORMATION
  Report Type: Report from Study
  Country: US (occurrence: US)
  Receive Date: 20180213
  Receipt Date: 20180302
  Transmission Date: 20180509
  Serious: Yes (Other)
  Sender: FDA-Public Use
  Company Number: US-VERTEX PHARMACEUTICALS-2018-001003

PATIENT
  Sex: Female

DRUGS (24)
  1. PROVENTIL [Concomitant]
     Active Substance: ALBUTEROL
     Dosage: 1 DOSAGE FORM, PRN
     Route: 055
  2. IBUPROFEN. [Concomitant]
     Active Substance: IBUPROFEN
     Dosage: 1 DOSAGE FORM, PRN
  3. LANTUS [Concomitant]
     Active Substance: INSULIN GLARGINE
     Dosage: 8 UT
  4. VITAMIN D                          /00107901/ [Concomitant]
     Active Substance: ERGOCALCIFEROL
     Dosage: 1 DOSAGE FORM
     Route: 048
  5. ACETAMINOPHEN. [Concomitant]
     Active Substance: ACETAMINOPHEN
     Indication: PAIN
     Dosage: 2 TABS EVERY 4 HOURS
     Route: 048
  6. CAYSTON [Concomitant]
     Active Substance: AZTREONAM
     Dosage: 75 MG, TID
     Route: 055
  7. PERTZYE [Concomitant]
     Active Substance: PANCRELIPASE AMYLASE\PANCRELIPASE LIPASE\PANCRELIPASE PROTEASE
     Dosage: 3 CAS WITH SNACKS, 3 CAPS BEFORE AND 3 CAPS AFTER TUBE FEEDING
  8. VENTOLIN HFA [Concomitant]
     Active Substance: ALBUTEROL SULFATE
     Dosage: 2 DOSAGE FORM, PRN
     Route: 055
  9. CALCIUM CARBONATE. [Concomitant]
     Active Substance: CALCIUM CARBONATE
     Dosage: 2 DOSAGE FORM, BID
     Route: 048
  10. ZYRTEC [Concomitant]
     Active Substance: CETIRIZINE HYDROCHLORIDE
     Dosage: 1 DOSAGE FORM, QD
     Route: 048
  11. VITAMIN D3 [Concomitant]
     Active Substance: CHOLECALCIFEROL
     Dosage: 5 DOSAGE FORM, BID
     Route: 048
  12. PULMOZYME [Concomitant]
     Active Substance: DORNASE ALFA
     Dosage: 1 DOSAGE FORM, QD
     Route: 055
  13. LOVENOX [Concomitant]
     Active Substance: ENOXAPARIN SODIUM
     Dosage: 0.4 MILLILITER
  14. TOBI [Concomitant]
     Active Substance: TOBRAMYCIN
     Dosage: 5 MILLILITER, BID
  15. MIRALAX [Concomitant]
     Active Substance: POLYETHYLENE GLYCOL 3350
     Dosage: 1 DOSAGE FORM, PRN
  16. DUONEB [Concomitant]
     Active Substance: ALBUTEROL SULFATE\IPRATROPIUM BROMIDE
     Dosage: 3 MILLILITER, QID
     Route: 055
  17. ZITHROMAX [Concomitant]
     Active Substance: AZITHROMYCIN DIHYDRATE
     Dosage: 2 TABS MONDAY, WEDNESDAY, FRIDAY
  18. LEVSIN [Concomitant]
     Active Substance: HYOSCYAMINE SULFATE
     Dosage: 1 DOSAGE FORM, QID
     Route: 048
  19. COMBIVENT RESPIMAT [Concomitant]
     Active Substance: ALBUTEROL SULFATE\IPRATROPIUM BROMIDE
     Dosage: 1 DOSAGE FORM, TID
     Route: 055
  20. PEPTAMEN [Concomitant]
     Dosage: 96 ML/HR OVER 12 HOURS AT NIGHT
  21. FLUTICASONE FUROATE W/VILANTEROL [Concomitant]
     Active Substance: FLUTICASONE FUROATE\VILANTEROL TRIFENATATE
     Dosage: 1 DOSAGE FORM, QD
     Route: 055
  22. DELTASONE                          /00016001/ [Concomitant]
     Active Substance: DEXAMETHASONE
     Dosage: 1 DOSAGE FORM, QD
     Route: 048
  23. ORKAMBI [Suspect]
     Active Substance: IVACAFTOR\LUMACAFTOR
     Indication: CYSTIC FIBROSIS
     Dosage: 2 (200/125 MG EACH), BID
     Route: 048
     Dates: start: 20160607
  24. HYPERSAL [Concomitant]
     Dosage: 1 DOSAGE FORM, QD
     Route: 055

REACTIONS (3)
  - Suicidal ideation [Unknown]
  - Biliary dyskinesia [Not Recovered/Not Resolved]
  - Treatment noncompliance [Not Recovered/Not Resolved]
